FAERS Safety Report 11754145 (Version 1)
Quarter: 2015Q4

REPORT INFORMATION
  Report Type: Report from Study
  Country: BR (occurrence: BR)
  Receive Date: 20151119
  Receipt Date: 20151119
  Transmission Date: 20160304
  Serious: Yes (Other)
  Sender: FDA-Public Use
  Company Number: PHHY2015BR151016

PATIENT
  Sex: Female
  Weight: 68 kg

DRUGS (3)
  1. AFINITOR [Suspect]
     Active Substance: EVEROLIMUS
     Indication: BREAST CANCER
     Dosage: 10 MG, UNK
     Route: 048
     Dates: start: 201503
  2. AFINITOR [Suspect]
     Active Substance: EVEROLIMUS
     Dosage: 10 MG, QD
     Route: 048
     Dates: start: 201504
  3. AFINITOR [Suspect]
     Active Substance: EVEROLIMUS
     Dosage: 5 MG, UNK
     Route: 048

REACTIONS (6)
  - Cataract [Unknown]
  - Aphthous ulcer [Unknown]
  - Body height decreased [Not Recovered/Not Resolved]
  - Metastasis [Unknown]
  - Visual impairment [Not Recovered/Not Resolved]
  - Chromatopsia [Not Recovered/Not Resolved]
